FAERS Safety Report 5158282-7 (Version None)
Quarter: 2006Q4

REPORT INFORMATION
  Report Type: 
  Country: None (occurrence: None)
  Receive Date: 20061128
  Receipt Date: 20061117
  Transmission Date: 20070319
  Serious: Yes (Other)
  Sender: FDA-Public Use
  Company Number: FR-JNJFOC-20061006633

PATIENT
  Age: 72 Year
  Sex: Female
  Weight: 70 kg

DRUGS (2)
  1. REMICADE [Suspect]
     Indication: RHEUMATOID ARTHRITIS
     Route: 042
  2. ACETAMINOPHEN W/ PROPOXYPHENE HCL [Concomitant]
     Indication: RHEUMATOID ARTHRITIS
     Dosage: 2-6 DOSES
     Route: 048

REACTIONS (1)
  - LARYNGEAL CANCER [None]
